FAERS Safety Report 8053474-1 (Version None)
Quarter: 2012Q1

REPORT INFORMATION
  Report Type: 
  Country: None (occurrence: None)
  Receive Date: 20120118
  Receipt Date: 20120112
  Transmission Date: 20120608
  Serious: Yes (Hospitalization, Other)
  Sender: FDA-Public Use
  Company Number: US-PFIZER INC-2012009625

PATIENT
  Sex: Male
  Weight: 33.2 kg

DRUGS (6)
  1. XANAX [Concomitant]
     Dosage: UNK
     Dates: end: 20111020
  2. CLONIDINE [Concomitant]
     Dosage: UNK
     Dates: end: 20111020
  3. XANAX XR [Suspect]
     Dosage: UNK
     Dates: start: 20111020, end: 20111107
  4. CLONIDINE [Suspect]
     Indication: ATTENTION DEFICIT/HYPERACTIVITY DISORDER
     Dosage: UNK
     Dates: start: 20111020, end: 20111107
  5. SEROQUEL [Suspect]
     Dosage: UNK
     Dates: start: 20111020, end: 20111107
  6. SEROQUEL [Concomitant]
     Dosage: UNK
     Dates: end: 20111020

REACTIONS (3)
  - DRUG INEFFECTIVE [None]
  - AGGRESSION [None]
  - ANAPHYLACTIC REACTION [None]
